FAERS Safety Report 6295287-7 (Version None)
Quarter: 2009Q3

REPORT INFORMATION
  Report Type: 
  Country: None (occurrence: None)
  Receive Date: 20090803
  Receipt Date: 20090506
  Transmission Date: 20100115
  Serious: No
  Sender: FDA-Public Use
  Company Number: US-BAYER-200917505NA

PATIENT
  Age: 65 Year
  Sex: Female
  Weight: 82 kg

DRUGS (2)
  1. ULTRAVIST (PHARMACY BULK) [Suspect]
     Indication: ABDOMINAL PAIN
     Dosage: TOTAL DAILY DOSE: 100 ML  UNIT DOSE: 500 ML
     Route: 042
     Dates: start: 20090327, end: 20090327
  2. BARIUM SULFATE [Concomitant]
     Indication: COMPUTERISED TOMOGRAM ABDOMEN
     Dosage: AS USED: 900 ML
     Route: 048
     Dates: start: 20090327, end: 20090327

REACTIONS (1)
  - URTICARIA [None]
